FAERS Safety Report 6730000-8 (Version None)
Quarter: 2010Q2

REPORT INFORMATION
  Report Type: 
  Country: None (occurrence: None)
  Receive Date: 20100513
  Receipt Date: 20100430
  Transmission Date: 20101027
  Serious: Yes (Hospitalization)
  Sender: FDA-Public Use
  Company Number: 011079

PATIENT
  Sex: Female
  Weight: 43 kg

DRUGS (3)
  1. CERTOLIZUMAB PEGOL (CERTOLIZUMAB PEGOL) [Suspect]
     Indication: CROHN'S DISEASE
     Dosage: 400 MG 1X/MONTH SUBCUTANEOUS
     Route: 058
     Dates: start: 20090131, end: 20100329
  2. PREDNISOLONE [Concomitant]
  3. MESALAMINE [Concomitant]

REACTIONS (4)
  - ABSCESS [None]
  - BODY TEMPERATURE INCREASED [None]
  - CONDITION AGGRAVATED [None]
  - CROHN'S DISEASE [None]
